FAERS Safety Report 12453669 (Version 1)
Quarter: 2016Q2

REPORT INFORMATION
  Report Type: Spontaneous
  Country: US (occurrence: US)
  Receive Date: 20160609
  Receipt Date: 20160609
  Transmission Date: 20160815
  Serious: Yes (Other)
  Sender: FDA-Public Use
  Company Number: US-ABBVIE-16P-163-1643635-00

PATIENT
  Age: 76 Year
  Sex: Male

DRUGS (2)
  1. LUPRON DEPOT [Suspect]
     Active Substance: LEUPROLIDE ACETATE
     Indication: PRODUCT USED FOR UNKNOWN INDICATION
     Route: 065
  2. CASODEX [Concomitant]
     Active Substance: BICALUTAMIDE
     Indication: COLON CANCER

REACTIONS (6)
  - Metastases to spine [Unknown]
  - Metastases to abdominal cavity [Unknown]
  - Abdominal lymphadenopathy [Unknown]
  - Intestinal mass [Unknown]
  - Bone pain [Unknown]
  - Medical device implantation [Unknown]

NARRATIVE: CASE EVENT DATE: 201510
